FAERS Safety Report 24907512 (Version 2)
Quarter: 2025Q1

REPORT INFORMATION
  Report Type: Report from Study
  Country: CA (occurrence: CA)
  Receive Date: 20250131
  Receipt Date: 20250309
  Transmission Date: 20250408
  Serious: Yes (Death, Other)
  Sender: ABBVIE
  Company Number: CA-ABBVIE-6099231

PATIENT
  Age: 71 Year
  Sex: Female

DRUGS (1)
  1. RINVOQ [Suspect]
     Active Substance: UPADACITINIB
     Indication: Rheumatoid arthritis
     Dosage: LAST ADMIN DATE 2024
     Route: 048
     Dates: start: 20240513

REACTIONS (13)
  - Death [Fatal]
  - Chronic kidney disease [Unknown]
  - Seronegative arthritis [Unknown]
  - Dyspnoea [Unknown]
  - Abdominal pain [Unknown]
  - Acute myocardial infarction [Unknown]
  - Cardiac failure congestive [Unknown]
  - Acute kidney injury [Unknown]
  - Cardiogenic shock [Unknown]
  - Loss of consciousness [Unknown]
  - Cardiac failure [Unknown]
  - Coronary artery disease [Unknown]
  - Diabetes mellitus [Unknown]

NARRATIVE: CASE EVENT DATE: 20241105
